FAERS Safety Report 7961154-3 (Version None)
Quarter: 2011Q4

REPORT INFORMATION
  Report Type: 
  Country: None (occurrence: None)
  Receive Date: 20111121
  Receipt Date: 20111011
  Transmission Date: 20120403
  Serious: No
  Sender: FDA-Public Use
  Company Number: 1000024636

PATIENT
  Age: 44 Year
  Sex: Female

DRUGS (1)
  1. VIIBRYD [Suspect]
     Dosage: 40 MG (40 MG,1 IN 1 D),ORAL
     Route: 048
     Dates: start: 20110930, end: 20111001

REACTIONS (3)
  - HOT FLUSH [None]
  - HEARING IMPAIRED [None]
  - PHOTOPSIA [None]
